FAERS Safety Report 8821914 (Version 6)
Quarter: 2013Q3

REPORT INFORMATION
  Report Type: Spontaneous
  Country: US (occurrence: US)
  Receive Date: 20121003
  Receipt Date: 20130705
  Transmission Date: 20140515
  Serious: Yes (Hospitalization, Disabling, Other)
  Sender: FDA-Public Use
  Company Number: US-009507513-1201USA03454

PATIENT
  Sex: Female

DRUGS (3)
  1. FOSAMAX [Suspect]
     Indication: OSTEOPOROSIS
     Dosage: 70 MG, QW
     Route: 048
  2. BONIVA [Suspect]
     Indication: OSTEOPOROSIS
  3. QUINAPRIL HYDROCHLORIDE [Concomitant]
     Indication: HYPERTENSION
     Dosage: 5 MG, UNK

REACTIONS (38)
  - Deafness [Unknown]
  - Knee operation [Unknown]
  - Toe operation [Unknown]
  - Renal failure [Unknown]
  - Dental caries [Unknown]
  - Cardiac pacemaker insertion [Unknown]
  - Ankle fracture [Unknown]
  - Osteonecrosis of jaw [Recovered/Resolved]
  - Fall [Unknown]
  - Orthopnoea [Unknown]
  - Empyema [Recovered/Resolved]
  - Sick sinus syndrome [Unknown]
  - Arthritis [Unknown]
  - Aortic valve incompetence [Unknown]
  - Systolic dysfunction [Unknown]
  - Adverse event [Unknown]
  - Ulcer [Unknown]
  - Dehydration [Unknown]
  - Fall [Unknown]
  - Spinal compression fracture [Unknown]
  - Osteoarthritis [Unknown]
  - Foot deformity [Unknown]
  - Foot deformity [Unknown]
  - Tooth extraction [Unknown]
  - Jaw operation [Unknown]
  - Exostosis of jaw [Unknown]
  - Infection [Unknown]
  - Tooth infection [Unknown]
  - Fistula [Unknown]
  - Dizziness [Unknown]
  - Arthralgia [Unknown]
  - Gastrooesophageal reflux disease [Unknown]
  - Osteomyelitis [Unknown]
  - Jaw operation [Unknown]
  - Open reduction of fracture [Unknown]
  - Surgery [Unknown]
  - Appendicectomy [Unknown]
  - Spinal fusion surgery [Unknown]
